FAERS Safety Report 4452161-6 (Version None)
Quarter: 2004Q3

REPORT INFORMATION
  Report Type: 
  Country: None (occurrence: None)
  Receive Date: 20040916
  Receipt Date: 20040916
  Transmission Date: 20050211
  Serious: Yes (Life-Threatening)
  Sender: FDA-Public Use
  Company Number: None

PATIENT
  Sex: Female
  Weight: 13 kg

DRUGS (17)
  1. INTRALIPID 10% [Suspect]
     Indication: VOLVULUS OF BOWEL
     Dosage: 74 ML IN TPN DAILY
     Dates: start: 20021001, end: 20040901
  2. INTRALIPID 10% [Suspect]
  3. INTRALIPID 10% [Suspect]
  4. INTRALIPID 10% [Suspect]
  5. INTRALIPID 10% [Suspect]
  6. INTRALIPID 10% [Suspect]
  7. INTRALIPID 10% [Suspect]
  8. INTRALIPID 10% [Suspect]
  9. INTRALIPID 10% [Suspect]
  10. INTRALIPID 10% [Suspect]
  11. INTRALIPID 10% [Suspect]
  12. DEXTROSE [Concomitant]
  13. TRAVASOL 10% [Concomitant]
  14. M.V.I. [Concomitant]
  15. VITAMIN C [Concomitant]
  16. HEPARIN [Concomitant]
  17. LEVOCARNITINE [Concomitant]

REACTIONS (8)
  - BACTERIAL INFECTION [None]
  - BILIRUBIN CONJUGATED INCREASED [None]
  - BLOOD BILIRUBIN INCREASED [None]
  - CENTRAL LINE INFECTION [None]
  - FUNGAL INFECTION [None]
  - HEPATIC FAILURE [None]
  - PANCREATITIS [None]
  - SEPSIS [None]
